FAERS Safety Report 16675041 (Version 1)
Quarter: 2019Q3

REPORT INFORMATION
  Report Type: Spontaneous
  Country: JP (occurrence: JP)
  Receive Date: 20190806
  Receipt Date: 20190806
  Transmission Date: 20191004
  Serious: Yes (Hospitalization)
  Sender: FDA-Public Use
  Company Number: JP-JNJFOC-20190804454

PATIENT
  Age: 87 Year
  Sex: Male

DRUGS (8)
  1. AMLODIPINE [Concomitant]
     Active Substance: AMLODIPINE BESYLATE
  2. FERROMIA [Concomitant]
     Active Substance: SODIUM FERROUS CITRATE
  3. NIFEDIPINE. [Concomitant]
     Active Substance: NIFEDIPINE
  4. TELMISARTAN. [Concomitant]
     Active Substance: TELMISARTAN
  5. RIVAROXABAN [Suspect]
     Active Substance: RIVAROXABAN
     Indication: PRODUCT USED FOR UNKNOWN INDICATION
     Dosage: UNK, QD
     Route: 048
     Dates: start: 20131015, end: 20190705
  6. FEBURIC [Concomitant]
     Active Substance: FEBUXOSTAT
  7. LANIRAPID [Concomitant]
     Active Substance: METILDIGOXIN
  8. PILSICAINIDE HYDROCHLORIDE [Concomitant]
     Active Substance: PILSICAINIDE HYDROCHLORIDE

REACTIONS (1)
  - Anaemia [Recovered/Resolved]

NARRATIVE: CASE EVENT DATE: 20190703
